FAERS Safety Report 8757962 (Version 2)
Quarter: 2012Q4

REPORT INFORMATION
  Report Type: 
  Country: US (occurrence: US)
  Receive Date: 20120828
  Receipt Date: 20120831
  Transmission Date: 20130627
  Serious: No
  Sender: FDA-Public Use
  Company Number: US-PFIZER INC-2012208204

PATIENT
  Age: 50 Year
  Sex: Female
  Weight: 104 kg

DRUGS (4)
  1. ZIPRASIDONE [Suspect]
     Indication: DEPRESSION
     Dosage: 120 mg, 1x/day
     Route: 048
     Dates: start: 201207
  2. ZIPRASIDONE [Suspect]
     Indication: ANXIETY
  3. PROZAC [Concomitant]
     Dosage: 40 mg, UNK
  4. DEPLIN [Concomitant]
     Dosage: UNK

REACTIONS (1)
  - Drug ineffective [Not Recovered/Not Resolved]
